FAERS Safety Report 6534902-7 (Version None)
Quarter: 2010Q1

REPORT INFORMATION
  Report Type: 
  Country: None (occurrence: None)
  Receive Date: 20100112
  Receipt Date: 20091230
  Transmission Date: 20100710
  Serious: Yes (Other)
  Sender: FDA-Public Use
  Company Number: CA-GENENTECH-296620

PATIENT
  Sex: Female
  Weight: 59 kg

DRUGS (2)
  1. XOLAIR [Suspect]
     Indication: ASTHMA
     Dosage: 300 UNK, UNK
     Route: 058
     Dates: start: 20080414
  2. XOLAIR [Suspect]
     Dosage: 300 MG, 1/MONTH
     Route: 058
     Dates: start: 20091230

REACTIONS (4)
  - BODY TEMPERATURE DECREASED [None]
  - FATIGUE [None]
  - PALPITATIONS [None]
  - RESPIRATORY RATE INCREASED [None]
